FAERS Safety Report 10656951 (Version 1)
Quarter: 2014Q4

REPORT INFORMATION
  Report Type: Spontaneous
  Country: US (occurrence: None)
  Receive Date: 20141215
  Receipt Date: 20141215
  Transmission Date: 20150529
  Serious: Yes (Life-Threatening)
  Sender: FDA-Public Use
  Company Number: 54973 AE1581

PATIENT
  Age: 18 Month
  Sex: Female

DRUGS (1)
  1. BABY TEETHING [Suspect]
     Active Substance: ARABICA COFFEE BEAN\ATROPA BELLADONNA\CALCIUM PHOSPHATE\CHAMOMILE
     Indication: TEETHING
     Dosage: 1-2 TABS, 1-2XDAY PRN

REACTIONS (2)
  - Loss of consciousness [None]
  - Febrile convulsion [None]

NARRATIVE: CASE EVENT DATE: 201409
